FAERS Safety Report 14369448 (Version 2)
Quarter: 2018Q1

REPORT INFORMATION
  Report Type: Spontaneous
  Country: US (occurrence: US)
  Receive Date: 20180110
  Receipt Date: 20180206
  Transmission Date: 20180509
  Serious: Yes (Death, Hospitalization)
  Sender: FDA-Public Use
  Company Number: US-VIFOR (INTERNATIONAL) INC.-VIT-2018-00048

PATIENT
  Age: 64 Year
  Sex: Male

DRUGS (21)
  1. VELTASSA [Suspect]
     Active Substance: PATIROMER
     Indication: HYPERKALAEMIA
     Route: 048
     Dates: start: 20170510
  2. ACICLOVIR [Concomitant]
     Active Substance: ACYCLOVIR
  3. COUMADIN [Concomitant]
     Active Substance: WARFARIN SODIUM
  4. MYFORTIC [Concomitant]
     Active Substance: MYCOPHENOLATE SODIUM
  5. ONDANSETRON HYDROCHLORIDE. [Concomitant]
     Active Substance: ONDANSETRON HYDROCHLORIDE
  6. PHOSLO [Concomitant]
     Active Substance: CALCIUM ACETATE
  7. PROGRAF [Concomitant]
     Active Substance: TACROLIMUS\TACROLIMUS ANHYDROUS
  8. MELATONIN [Concomitant]
     Active Substance: MELATONIN
  9. LOMOTIL [Concomitant]
     Active Substance: ATROPINE SULFATE\DIPHENOXYLATE HYDROCHLORIDE
  10. ULORIC [Concomitant]
     Active Substance: FEBUXOSTAT
  11. DIPHENHYDRAMINE HYDROCHLORIDE. [Concomitant]
     Active Substance: DIPHENHYDRAMINE HYDROCHLORIDE
  12. CALCIUM LACTATE [Concomitant]
     Active Substance: CALCIUM LACTATE
  13. RENAL MULTIVITAMIN FORMULA [Concomitant]
  14. NIFEDIPINE. [Concomitant]
     Active Substance: NIFEDIPINE
  15. MAGNESIUM [Concomitant]
     Active Substance: MAGNESIUM
  16. PANTOPRAZOLE SODIUM SESQUIHYDRATE [Concomitant]
     Active Substance: PANTOPRAZOLE SODIUM
  17. SALBUTAMOL SULFATE [Concomitant]
     Active Substance: ALBUTEROL SULFATE
  18. XANAX [Concomitant]
     Active Substance: ALPRAZOLAM
  19. SYNTHROID [Concomitant]
     Active Substance: LEVOTHYROXINE SODIUM
  20. ZOVIRAX [Concomitant]
     Active Substance: ACYCLOVIR
  21. LOSARTAN POTASSIUM. [Concomitant]
     Active Substance: LOSARTAN POTASSIUM

REACTIONS (3)
  - Pneumonia [Unknown]
  - Death [Fatal]
  - Off label use [Unknown]

NARRATIVE: CASE EVENT DATE: 20170510
